FAERS Safety Report 7804120-0 (Version None)
Quarter: 2011Q4

REPORT INFORMATION
  Report Type: 
  Country: None (occurrence: None)
  Receive Date: 20111010
  Receipt Date: 20110930
  Transmission Date: 20120403
  Serious: Yes (Hospitalization)
  Sender: FDA-Public Use
  Company Number: IE-ASTELLAS-2011US006234

PATIENT
  Sex: Female

DRUGS (1)
  1. TACROLIMUS [Suspect]
     Indication: DERMATITIS ATOPIC
     Dosage: 0.03 %, UID/QD
     Route: 061
     Dates: start: 20050301

REACTIONS (2)
  - HAND-FOOT-AND-MOUTH DISEASE [None]
  - VIRAL INFECTION [None]
